FAERS Safety Report 9621227 (Version 3)
Quarter: 2013Q4

REPORT INFORMATION
  Report Type: Report from Study
  Country: AU (occurrence: AU)
  Receive Date: 20131015
  Receipt Date: 20131118
  Transmission Date: 20140711
  Serious: Yes (Other)
  Sender: FDA-Public Use
  Company Number: PHHY2013AU115006

PATIENT
  Age: 76 Year
  Sex: Female

DRUGS (20)
  1. ACLASTA [Suspect]
     Dosage: 5 MG, ONCE A YEAR
     Route: 042
     Dates: start: 20111014
  2. ACLASTA [Suspect]
     Dosage: 5 MG, UNK
     Route: 042
     Dates: start: 20121009
  3. ASASANTIN [Concomitant]
     Dosage: 1 DF, BID WITH FOOD
  4. CAPOTEN [Concomitant]
     Dosage: 0.5 DF, BID
  5. FRUSEMIDE [Concomitant]
     Dosage: 1 DF, QD
  6. GASTROSTOP [Concomitant]
     Dosage: 2 MG, UNK
  7. HYDROZOLE [Concomitant]
     Dosage: CREAM APPLY AREA OF THE PERINUM UNTIL HEALED
  8. MAXOLON [Concomitant]
     Indication: VOMITING
     Dosage: 1 DF, TID
  9. MIRTAZAPINE [Concomitant]
     Dosage: 1 DF, 1 NIGHT
  10. NEXIUM//ESOMEPRAZOLE MAGNESIUM [Concomitant]
     Dosage: 1 DF, ONCE DAY
  11. OSTELIN VITAMIN D [Concomitant]
     Dosage: 1 DF, QD WITH FOOD
  12. OXYCODONE [Concomitant]
     Dosage: 1 DF, PRN MORNING
  13. PANAMAX [Concomitant]
     Dosage: 2 DF, PRN
  14. PREDNISOLONE [Concomitant]
     Dosage: 1 MG,4 ONCE DAY WITH FOOD
  15. PREDNISOLONE [Concomitant]
     Dosage: 5 MG, 2 ONCE DAY WITH FOOD
  16. ZOCOR [Concomitant]
     Dosage: 1 DF,AT NIGHT
  17. ACE INHIBITOR NOS [Concomitant]
     Dosage: UNK
  18. DIURETICS [Concomitant]
     Dosage: UNK
  19. VITAMIN D3 [Concomitant]
     Dosage: UNK
  20. SALICYLATES [Concomitant]
     Dosage: UNK

REACTIONS (13)
  - Renal impairment [Unknown]
  - Urine albumin/creatinine ratio increased [Unknown]
  - Red blood cells urine positive [Unknown]
  - White blood cells urine positive [Unknown]
  - Gamma-glutamyltransferase increased [Not Recovered/Not Resolved]
  - Blood glucose increased [Recovering/Resolving]
  - Alanine aminotransferase increased [Not Recovered/Not Resolved]
  - Red blood cell sedimentation rate increased [Unknown]
  - Blood triglycerides increased [Unknown]
  - High density lipoprotein decreased [Unknown]
  - Mean cell volume increased [Unknown]
  - White blood cell count increased [Unknown]
  - Monocyte count increased [Unknown]
